FAERS Safety Report 7393056-8 (Version None)
Quarter: 2011Q2

REPORT INFORMATION
  Report Type: 
  Country: None (occurrence: None)
  Receive Date: 20110404
  Receipt Date: 20110323
  Transmission Date: 20111010
  Serious: Yes (Hospitalization)
  Sender: FDA-Public Use
  Company Number: DE-WATSON-2011-02711

PATIENT
  Age: 17 Year
  Sex: Male

DRUGS (2)
  1. DICLOFENAC (WATSON LABORATORIES) [Suspect]
     Indication: ANALGESIC THERAPY
     Dosage: UNK
  2. METAMIZOLE [Suspect]
     Indication: ANALGESIC THERAPY
     Dosage: 4 X 30 DROPS

REACTIONS (6)
  - PYREXIA [None]
  - CHILLS [None]
  - DEPRESSION [None]
  - AGRANULOCYTOSIS [None]
  - ODYNOPHAGIA [None]
  - FEBRILE INFECTION [None]
